FAERS Safety Report 15523753 (Version 3)
Quarter: 2018Q4

REPORT INFORMATION
  Report Type: Report from Study
  Country: None (occurrence: US)
  Receive Date: 20181018
  Receipt Date: 20181210
  Transmission Date: 20190205
  Serious: Yes (Death)
  Sender: FDA-Public Use
  Company Number: US-ABBVIE-18K-163-2480059-00

PATIENT
  Age: 59 Year
  Sex: Female
  Weight: 71.8 kg

DRUGS (1)
  1. VENCLEXTA [Suspect]
     Active Substance: VENETOCLAX
     Indication: ACUTE MYELOID LEUKAEMIA
     Dosage: MAINTENANCE DOSE
     Route: 048
     Dates: start: 20180824, end: 20180906

REACTIONS (2)
  - Myeloid leukaemia [Fatal]
  - Intentional product use issue [Recovered/Resolved]

NARRATIVE: CASE EVENT DATE: 2018
